FAERS Safety Report 6829131-3 (Version None)
Quarter: 2010Q3

REPORT INFORMATION
  Report Type: 
  Country: None (occurrence: None)
  Receive Date: 20100709
  Receipt Date: 20070228
  Transmission Date: 20110219
  Serious: No
  Sender: FDA-Public Use
  Company Number: US-PFIZER INC-2007016524

PATIENT
  Sex: Male
  Weight: 79.38 kg

DRUGS (2)
  1. CHANTIX [Suspect]
     Indication: SMOKING CESSATION THERAPY
     Route: 048
     Dates: start: 20070218
  2. AMBIEN [Concomitant]
     Indication: SLEEP DISORDER THERAPY

REACTIONS (3)
  - DIZZINESS [None]
  - DRY EYE [None]
  - EYE PRURITUS [None]
